FAERS Safety Report 4829867-X (Version None)
Quarter: 2005Q4

REPORT INFORMATION
  Report Type: 
  Country: None (occurrence: None)
  Receive Date: 20051115
  Receipt Date: 20051103
  Transmission Date: 20060501
  Serious: Yes (Disabling)
  Sender: FDA-Public Use
  Company Number: 2005151003

PATIENT
  Age: 56 Year
  Sex: Female

DRUGS (7)
  1. NEURONTIN [Suspect]
     Indication: HEADACHE
     Dosage: 450 MG (150 MG, 3 IN 1 D), ORAL
     Route: 048
     Dates: start: 20030301
  2. ZOLOFT [Suspect]
     Indication: DEPRESSION
     Dosage: 50 MG (50 MG, 1 IN 1 D), ORAL
     Route: 048
  3. WELLBUTRIN [Concomitant]
  4. GLUCOPHAGE [Concomitant]
  5. COMPAZINE [Concomitant]
  6. ZESTRIL [Concomitant]
  7. RITALIN [Concomitant]

REACTIONS (5)
  - DEPRESSION [None]
  - HYPOTHALAMO-PITUITARY DISORDERS [None]
  - JOB DISSATISFACTION [None]
  - MEMORY IMPAIRMENT [None]
  - STRESS [None]
